FAERS Safety Report 6287573-1 (Version None)
Quarter: 2009Q3

REPORT INFORMATION
  Report Type: 
  Country: None (occurrence: None)
  Receive Date: 20090727
  Receipt Date: 20090715
  Transmission Date: 20100115
  Serious: Yes (Other)
  Sender: FDA-Public Use
  Company Number: 2009SP001834

PATIENT
  Age: 42 Year
  Sex: Male

DRUGS (8)
  1. LUNESTA [Suspect]
     Dosage: ORAL
     Route: 048
  2. CLONAZEPAM [Suspect]
  3. OXYCODONE HCL [Suspect]
  4. METHOCARBAMOL [Suspect]
  5. INTERFERON BETA [Suspect]
     Indication: MULTIPLE SCLEROSIS
     Dosage: 44 UG;TIW; SUBCUTANEOUS
     Route: 058
     Dates: start: 20061101, end: 20090701
  6. VENLAFAXINE HYDROCHLORIDE [Concomitant]
  7. PROVIGIL [Concomitant]
  8. PREV MEDS [Concomitant]

REACTIONS (3)
  - DEPRESSED LEVEL OF CONSCIOUSNESS [None]
  - MULTIPLE DRUG OVERDOSE ACCIDENTAL [None]
  - SUICIDE ATTEMPT [None]
